FAERS Safety Report 9873302 (Version 2)
Quarter: 2015Q1

REPORT INFORMATION
  Report Type: Other
  Country: US (occurrence: US)
  Receive Date: 20140206
  Receipt Date: 20150203
  Transmission Date: 20150721
  Serious: No
  Sender: FDA-Public Use
  Company Number: US-ACORDA-ACO_101420_2014

PATIENT
  Sex: Female

DRUGS (2)
  1. AMPYRA [Suspect]
     Active Substance: DALFAMPRIDINE
     Indication: PRODUCT USED FOR UNKNOWN INDICATION
     Dosage: 10 MG, Q 12 HRS
     Route: 065
     Dates: start: 20140212
  2. LISINOPRIL. [Concomitant]
     Active Substance: LISINOPRIL
     Indication: PRODUCT USED FOR UNKNOWN INDICATION
     Dosage: 10 MG, UNK
     Route: 065

REACTIONS (12)
  - Muscle spasticity [Unknown]
  - Pruritus generalised [Unknown]
  - Arthralgia [Unknown]
  - Throat irritation [Recovering/Resolving]
  - Headache [Recovered/Resolved]
  - Oral pain [Recovering/Resolving]
  - Urinary incontinence [Unknown]
  - Discomfort [Unknown]
  - Stomatitis [Recovering/Resolving]
  - Dizziness [Unknown]
  - Glossitis [Recovering/Resolving]
  - Burning sensation [Unknown]
